FAERS Safety Report 9521288 (Version 1)
Quarter: 2013Q1

REPORT INFORMATION
  Report Type: Spontaneous
  Country: US (occurrence: None)
  Receive Date: 20130305
  Receipt Date: 20130305
  Transmission Date: 20140127
  Serious: Yes (Other)
  Sender: FDA-Public Use
  Company Number: 163-21880-11101271

PATIENT
  Age: 72 Year
  Sex: Male
  Weight: 76.39 kg

DRUGS (17)
  1. REVLIMID [Suspect]
     Indication: PLASMA CELL MYELOMA
     Dosage: 25 MG, 21 IN 21 D, PO
     Route: 048
     Dates: start: 201108
  2. ZOMETA (ZOLEDRONIC ACID) (UNKNOWN) [Concomitant]
  3. TERAZOSIN (TERAZOSIN) (CAPSULES) [Concomitant]
  4. LOTREL (LOTREL) (CAPSULES) [Concomitant]
  5. METAMUCIL (METAMUCIL ^PROCTER + GAMBLE^) (POWDER) [Concomitant]
  6. NEXIUM (ESOMEPRAZOLE) (CAPSULES) [Concomitant]
  7. VYTORIN (INEGY) (TABLETS) [Concomitant]
  8. ANTARA (FENOFIBRATTE) (CAPSULES) [Concomitant]
  9. CALCIUM 500 PLUS VITAMIN D (CALCIUM D3 ^STADA^) (TABLETS) [Concomitant]
  10. ASPIRIN (ACETYLSALICYLIC ACID) (TABLETS) [Concomitant]
  11. DEXAMETHASONE (DEXAMETHASONE) (TABLETS) [Concomitant]
  12. ANTIBIOTICS (ANTIBIOTICS) (UNKNOWN) [Concomitant]
  13. TAMSULOSIN (TAMSULOSIN) (CAPSULES) [Concomitant]
  14. METOPROLOL SUCCINATE ER (METOPROLOL SUCCINATE) (UNKNOWN) [Concomitant]
  15. TERBINAFINE (TERBINAFINE) (TABLETS) [Concomitant]
  16. POTASSIUM CHLORIDE (POTASSIUM CHLORIDE) (CAPSULES) [Concomitant]
  17. K-DUR (POTASSIUM CHLORIDE) (UNKNOWN) [Concomitant]

REACTIONS (16)
  - Diarrhoea [None]
  - Blood potassium decreased [None]
  - Nausea [None]
  - Ageusia [None]
  - Neuropathy peripheral [None]
  - Wound [None]
  - Toxicity to various agents [None]
  - Leukopenia [None]
  - Rash [None]
  - Weight decreased [None]
  - Dyspnoea exertional [None]
  - Dizziness postural [None]
  - Anaemia [None]
  - Thrombocytopenia [None]
  - Fatigue [None]
  - Decreased appetite [None]
